FAERS Safety Report 9334070 (Version 1)
Quarter: 2013Q2

REPORT INFORMATION
  Report Type: Spontaneous
  Country: US (occurrence: US)
  Receive Date: 20130606
  Receipt Date: 20130606
  Transmission Date: 20140414
  Serious: No
  Sender: FDA-Public Use
  Company Number: US-AMGEN-USASP2013003567

PATIENT
  Age: 65 Year
  Sex: Female

DRUGS (8)
  1. PROLIA [Suspect]
     Indication: OSTEOPOROSIS POSTMENOPAUSAL
     Dosage: UNK
     Dates: start: 201203
  2. CALCIUM [Concomitant]
     Dosage: 600 MG, BID
  3. VITAMIN D                          /00318501/ [Concomitant]
  4. POTASSIUM [Concomitant]
     Dates: start: 2012, end: 2012
  5. SIMVASTATIN [Concomitant]
  6. LOSARTAN [Concomitant]
     Dates: start: 2012
  7. DICLOFENAC [Concomitant]
     Dosage: UNK UNK, AS NECESSARY
  8. VALACYCLOVIR HYDROCHLORIDE [Concomitant]
     Indication: HERPES VIRUS INFECTION

REACTIONS (8)
  - Dry skin [Unknown]
  - Muscle spasms [Unknown]
  - Asthma [Unknown]
  - Arthralgia [Unknown]
  - Hypersensitivity [Unknown]
  - Cough [Unknown]
  - Myalgia [Unknown]
  - Pruritus [Unknown]
